FAERS Safety Report 4744150-9 (Version None)
Quarter: 2005Q3

REPORT INFORMATION
  Report Type: 
  Country: None (occurrence: None)
  Receive Date: 20050812
  Receipt Date: 20050803
  Transmission Date: 20060218
  Serious: Yes (Other)
  Sender: FDA-Public Use
  Company Number: PHEH2005US08623

PATIENT
  Age: 60 Year
  Sex: Female

DRUGS (2)
  1. ZOMETA [Suspect]
     Dosage: 4MG MONTHLY
     Dates: start: 20030101, end: 20050101
  2. CHEMOTHERAPEUTICS,OTHER [Suspect]
     Dosage: VARIOUS REGIMENS

REACTIONS (5)
  - ASEPTIC NECROSIS BONE [None]
  - BIOPSY BONE ABNORMAL [None]
  - BONE SCAN ABNORMAL [None]
  - JAW DISORDER [None]
  - OSTEONECROSIS [None]
